FAERS Safety Report 9485071 (Version 1)
Quarter: 2013Q3

REPORT INFORMATION
  Report Type: Report from Study
  Country: US (occurrence: US)
  Receive Date: 20130828
  Receipt Date: 20130828
  Transmission Date: 20140515
  Serious: No
  Sender: FDA-Public Use
  Company Number: US-ABBOTT-13P-163-1130682-00

PATIENT
  Age: 31 Year
  Sex: Female

DRUGS (1)
  1. ANDROGEL [Suspect]
     Indication: ILL-DEFINED DISORDER
     Dates: start: 201305, end: 20130803

REACTIONS (1)
  - Accidental exposure to product [Recovered/Resolved]
